FAERS Safety Report 19062407 (Version 2)
Quarter: 2021Q2

REPORT INFORMATION
  Report Type: Spontaneous
  Country: US (occurrence: US)
  Receive Date: 20210326
  Receipt Date: 20210408
  Transmission Date: 20210717
  Serious: No
  Sender: FDA-Public Use
  Company Number: US-AIMMUNE THERAPEUTICS, INC.-2021AIMT00116

PATIENT

DRUGS (1)
  1. PALFORZIA [Suspect]
     Active Substance: PEANUT
     Indication: FOOD ALLERGY
     Dosage: 0.5 MG, ONCE
     Route: 048
     Dates: start: 20210226, end: 20210226

REACTIONS (2)
  - Oral pruritus [Recovered/Resolved]
  - Throat tightness [None]

NARRATIVE: CASE EVENT DATE: 20210226
